FAERS Safety Report 21262112 (Version 1)
Quarter: 2022Q3

REPORT INFORMATION
  Report Type: Report from Study
  Country: RO (occurrence: RO)
  Receive Date: 20220827
  Receipt Date: 20220827
  Transmission Date: 20221027
  Serious: Yes (Hospitalization, Other)
  Sender: FDA-Public Use
  Company Number: RO-ABBVIE-22K-135-4416516-00

PATIENT
  Age: 71 Year
  Sex: Female

DRUGS (6)
  1. HUMIRA [Suspect]
     Active Substance: ADALIMUMAB
     Indication: Rheumatoid arthritis
     Route: 058
     Dates: start: 20090915
  2. NORVASC [Concomitant]
     Active Substance: AMLODIPINE BESYLATE
     Indication: Hypertension
     Dosage: PRIOR TO HUMIRA THERAPY
     Route: 048
  3. TRIMETAZIDINE DIHYDROCHLORIDE [Concomitant]
     Active Substance: TRIMETAZIDINE DIHYDROCHLORIDE
     Indication: Hypertension
     Dosage: PRIOR TO HUMIRA THERAPY
     Route: 048
  4. SENNALAX [Concomitant]
     Indication: Constipation
     Dosage: PRIOR TO HUMIRA THERAPY
     Route: 048
  5. REDIGEST [Concomitant]
     Indication: Constipation
     Dosage: PRIOR TO HUMIRA THERAPY
     Route: 048
  6. DIETARY SUPPLEMENT\HERBALS\MILK THISTLE [Concomitant]
     Active Substance: DIETARY SUPPLEMENT\HERBALS\MILK THISTLE
     Indication: Prophylaxis
     Route: 048
     Dates: start: 2015, end: 20220822

REACTIONS (10)
  - Deafness [Recovering/Resolving]
  - Herpes zoster [Recovered/Resolved]
  - Balance disorder [Recovering/Resolving]
  - Meniere^s disease [Recovered/Resolved]
  - Meniere^s disease [Recovering/Resolving]
  - Vertigo [Recovering/Resolving]
  - Blood uric acid increased [Recovering/Resolving]
  - Eye pain [Not Recovered/Not Resolved]
  - Influenza [Recovering/Resolving]
  - Blood cholesterol increased [Recovering/Resolving]

NARRATIVE: CASE EVENT DATE: 20120101
